FAERS Safety Report 6408180-3 (Version None)
Quarter: 2009Q4

REPORT INFORMATION
  Report Type: 
  Country: None (occurrence: None)
  Receive Date: 20091021
  Receipt Date: 20091012
  Transmission Date: 20100525
  Serious: Yes (Hospitalization)
  Sender: FDA-Public Use
  Company Number: US-JNJFOC-20080304891

PATIENT
  Sex: Female
  Weight: 116.58 kg

DRUGS (17)
  1. INFLIXIMAB [Suspect]
     Route: 042
  2. INFLIXIMAB [Suspect]
     Route: 042
  3. INFLIXIMAB [Suspect]
     Route: 042
  4. INFLIXIMAB [Suspect]
     Route: 042
  5. INFLIXIMAB [Suspect]
     Indication: CROHN'S DISEASE
     Route: 042
  6. HUMIRA [Concomitant]
  7. HUMIRA [Concomitant]
  8. PENTESA [Concomitant]
     Route: 048
  9. PREVACID [Concomitant]
  10. PREDNISONE [Concomitant]
  11. SOLU-MEDROL [Concomitant]
  12. MULTIVITAMIN WITH IRON [Concomitant]
  13. FLUCONAZOLE [Concomitant]
  14. ONDANSETRON [Concomitant]
  15. HYDROCORTISONE [Concomitant]
  16. 5-ASA [Concomitant]
     Route: 054
  17. 5-ASA [Concomitant]
     Route: 048

REACTIONS (3)
  - CROHN'S DISEASE [None]
  - DEVICE RELATED SEPSIS [None]
  - DIARRHOEA [None]
